FAERS Safety Report 7903851-1 (Version None)
Quarter: 2011Q4

REPORT INFORMATION
  Report Type: 
  Country: None (occurrence: None)
  Receive Date: 20111109
  Receipt Date: 20111102
  Transmission Date: 20120403
  Serious: Yes (Other)
  Sender: FDA-Public Use
  Company Number: SE-UCBSA-044280

PATIENT
  Age: 25 Year
  Sex: Female

DRUGS (4)
  1. CIMZIA [Suspect]
     Indication: JUVENILE ARTHRITIS
     Dosage: 200 MG
     Route: 058
     Dates: start: 20100608, end: 20110617
  2. METHOTREXATE [Concomitant]
     Dosage: 2,5 MG
  3. NAPROXEN BMM PHARMA [Concomitant]
     Dosage: 250 MG
  4. FOLIC ACID [Concomitant]
     Dosage: 5 MG

REACTIONS (1)
  - PSORIASIS [None]
